FAERS Safety Report 9377297 (Version 1)
Quarter: 2013Q3

REPORT INFORMATION
  Report Type: Spontaneous
  Country: US (occurrence: US)
  Receive Date: 20130701
  Receipt Date: 20130701
  Transmission Date: 20140515
  Serious: No
  Sender: FDA-Public Use
  Company Number: US-ASTRAZENECA-2013SE48201

PATIENT
  Age: 67 Year
  Sex: Female
  Weight: 56.7 kg

DRUGS (15)
  1. NEXIUM [Suspect]
     Indication: GASTROOESOPHAGEAL REFLUX DISEASE
     Route: 048
     Dates: start: 2010
  2. OMEPRAZOLE [Suspect]
     Indication: GASTROOESOPHAGEAL REFLUX DISEASE
     Route: 048
     Dates: start: 2009, end: 201001
  3. PRILOSEC OTC [Suspect]
     Indication: GASTROOESOPHAGEAL REFLUX DISEASE
     Route: 048
     Dates: start: 201001, end: 2010
  4. CYCLOBENZAPRINE [Suspect]
     Indication: PAIN
     Route: 065
     Dates: end: 201210
  5. CYCLOBENZAPRINE [Suspect]
     Indication: PAIN
     Route: 065
     Dates: start: 201210
  6. MELOXICAM [Suspect]
     Indication: PAIN
     Route: 065
  7. BYSTOLIC [Concomitant]
     Indication: HYPERTENSION
     Route: 048
     Dates: start: 2011
  8. AMLODIPINE [Concomitant]
     Indication: HYPERTENSION
     Route: 048
     Dates: start: 2011
  9. LEXAPRO [Concomitant]
     Indication: DEPRESSION
     Route: 048
  10. CONCERTA [Concomitant]
     Indication: HYPERCHLORHYDRIA
     Dosage: 30/72 DAILY
     Route: 048
  11. ESTROGEN [Concomitant]
     Indication: HOT FLUSH
     Dosage: 0.5 TAILY
     Route: 048
     Dates: start: 2003
  12. ESTROGEN [Concomitant]
     Indication: MENOPAUSE
     Dosage: 0.5 TAILY
     Route: 048
     Dates: start: 2003
  13. ROPINIROLE [Concomitant]
     Indication: RESTLESS LEGS SYNDROME
     Route: 048
     Dates: start: 2013
  14. ROPINIROLE [Concomitant]
     Indication: MUSCLE SPASMS
     Route: 048
     Dates: start: 2013
  15. ALPRAZOLAM [Concomitant]
     Indication: ANXIETY
     Route: 048
     Dates: start: 2008

REACTIONS (8)
  - Delayed engraftment [Recovering/Resolving]
  - Gastric disorder [Unknown]
  - Osteoporosis [Not Recovered/Not Resolved]
  - Restless legs syndrome [Not Recovered/Not Resolved]
  - Drug hypersensitivity [Unknown]
  - Nausea [Not Recovered/Not Resolved]
  - Vomiting [Recovered/Resolved]
  - Drug ineffective [Unknown]
